FAERS Safety Report 8297933-5 (Version None)
Quarter: 2012Q2

REPORT INFORMATION
  Report Type: 
  Country: None (occurrence: None)
  Receive Date: 20120419
  Receipt Date: 20120412
  Transmission Date: 20120825
  Serious: Yes (Disabling)
  Sender: FDA-Public Use
  Company Number: US-BAYER-2012-035766

PATIENT

DRUGS (1)
  1. CIPROFLOXACIN HCL [Suspect]
     Dosage: UNK

REACTIONS (1)
  - UNEVALUABLE EVENT [None]
